FAERS Safety Report 7364000-4 (Version None)
Quarter: 2011Q1

REPORT INFORMATION
  Report Type: 
  Country: None (occurrence: None)
  Receive Date: 20110321
  Receipt Date: 20100526
  Transmission Date: 20110831
  Serious: Yes (Other)
  Sender: FDA-Public Use
  Company Number: US-BAYER-201017015NA

PATIENT
  Sex: Female
  Weight: 61.224 kg

DRUGS (5)
  1. YAZ [Suspect]
     Indication: CONTRACEPTION
  2. YAZ [Suspect]
  3. LEXAPRO [Concomitant]
     Dosage: 20 MG, UNK
  4. YAZ [Suspect]
     Indication: PREMENSTRUAL SYNDROME
     Route: 048
     Dates: start: 20090304, end: 20091230
  5. YAZ [Suspect]
     Indication: ACNE

REACTIONS (4)
  - HEMICEPHALALGIA [None]
  - VISUAL IMPAIRMENT [None]
  - ATRIAL SEPTAL DEFECT [None]
  - CEREBROVASCULAR ACCIDENT [None]
